FAERS Safety Report 9377226 (Version 1)
Quarter: 2013Q3

REPORT INFORMATION
  Report Type: Spontaneous
  Country: JP (occurrence: JP)
  Receive Date: 20130701
  Receipt Date: 20130701
  Transmission Date: 20140515
  Serious: Yes (Hospitalization)
  Sender: FDA-Public Use
  Company Number: JP-ASTELLAS-2012JP007579

PATIENT
  Age: 71 Year
  Sex: Male

DRUGS (6)
  1. PROGRAF [Suspect]
     Indication: IMMUNOSUPPRESSANT DRUG THERAPY
     Dosage: UNK
     Route: 048
     Dates: start: 200907
  2. PREDNISOLONE [Concomitant]
     Indication: IMMUNOSUPPRESSANT DRUG THERAPY
     Dosage: UNK
     Route: 065
     Dates: start: 200907
  3. PREDONINE                          /00016201/ [Concomitant]
     Dosage: UNK
     Route: 065
     Dates: start: 201209
  4. CELLCEPT                           /01275102/ [Concomitant]
     Indication: IMMUNOSUPPRESSANT DRUG THERAPY
     Dosage: UNK
     Route: 048
     Dates: start: 200907
  5. CELLCEPT                           /01275102/ [Concomitant]
     Dosage: UNK
     Route: 048
     Dates: start: 201209
  6. INTERFERON [Concomitant]
     Indication: HEPATITIS C
     Dosage: UNK
     Route: 065
     Dates: start: 201009

REACTIONS (2)
  - Pancreatic atrophy [Unknown]
  - Diabetes mellitus [Unknown]
